FAERS Safety Report 5988193-6 (Version None)
Quarter: 2008Q4

REPORT INFORMATION
  Report Type: 
  Country: None (occurrence: None)
  Receive Date: 20081204
  Receipt Date: 20081124
  Transmission Date: 20090506
  Serious: Yes (Hospitalization)
  Sender: FDA-Public Use
  Company Number: 2008S1011652

PATIENT
  Age: 74 Year
  Sex: Female

DRUGS (16)
  1. PHOSPHOSODA FLAVOR NOT SPECIFIED [Suspect]
     Indication: COLONOSCOPY
     Dosage: 90 ML; PO
     Route: 048
     Dates: start: 20041101, end: 20041101
  2. PREVACID [Concomitant]
  3. AGGRENOX [Concomitant]
  4. TIRCOR [Concomitant]
  5. ALLOPURINOL [Concomitant]
  6. AMARYL [Concomitant]
  7. MULTI-VITAMINS [Concomitant]
  8. FOSAMAX [Concomitant]
  9. ZYRTEC [Concomitant]
  10. DITROPAN [Concomitant]
  11. NORVASC [Concomitant]
  12. ATENOLOL [Concomitant]
  13. PREVACHOL [Concomitant]
  14. AVOLIDE [Concomitant]
  15. CITRUCEL [Concomitant]
  16. VITAMIN E [Concomitant]

REACTIONS (2)
  - RENAL FAILURE ACUTE [None]
  - RENAL FAILURE CHRONIC [None]
